FAERS Safety Report 15367940 (Version 1)
Quarter: 2018Q3

REPORT INFORMATION
  Report Type: Spontaneous
  Country: US (occurrence: US)
  Receive Date: 20180904
  Receipt Date: 20180904
  Transmission Date: 20181010
  Serious: No
  Sender: FDA-Public Use
  Company Number: None

PATIENT
  Age: 44 Year
  Sex: Male

DRUGS (14)
  1. YESCARTA [Suspect]
     Active Substance: AXICABTAGENE CILOLEUCEL
     Indication: DIFFUSE LARGE B-CELL LYMPHOMA
     Dates: start: 20180806
  2. LEVOFLOXACIN. [Concomitant]
     Active Substance: LEVOFLOXACIN
  3. CARVEDILOL. [Concomitant]
     Active Substance: CARVEDILOL
  4. ACYCLOVIR. [Concomitant]
     Active Substance: ACYCLOVIR
  5. LOSARTAN. [Concomitant]
     Active Substance: LOSARTAN
  6. MELATONIN [Concomitant]
     Active Substance: MELATONIN
  7. BACTRIM [Concomitant]
     Active Substance: SULFAMETHOXAZOLE\TRIMETHOPRIM
  8. HCTZ [Concomitant]
     Active Substance: HYDROCHLOROTHIAZIDE
  9. SEROQUEL [Concomitant]
     Active Substance: QUETIAPINE FUMARATE
  10. ALLOPURINOL. [Concomitant]
     Active Substance: ALLOPURINOL
  11. CYCLOPHOSPHAMIDE. [Concomitant]
     Active Substance: CYCLOPHOSPHAMIDE
  12. FLUDARABINE [Concomitant]
     Active Substance: FLUDARABINE PHOSPHATE
  13. CEFEPIME [Concomitant]
     Active Substance: CEFEPIME HYDROCHLORIDE
  14. FLUCONAZOLE. [Concomitant]
     Active Substance: FLUCONAZOLE

REACTIONS (4)
  - Tachycardia [None]
  - Tachypnoea [None]
  - Pyrexia [None]
  - Cytokine release syndrome [None]
